FAERS Safety Report 9025611 (Version 1)
Quarter: 2013Q1

REPORT INFORMATION
  Report Type: Spontaneous
  Country: DK (occurrence: DK)
  Receive Date: 20130123
  Receipt Date: 20130123
  Transmission Date: 20140127
  Serious: Yes (Death, Hospitalization)
  Sender: FDA-Public Use
  Company Number: DK-BRISTOL-MYERS SQUIBB COMPANY-17164773

PATIENT
  Age: 72 Year
  Sex: Male

DRUGS (1)
  1. LYSODREN [Suspect]

REACTIONS (4)
  - Pneumonia [Fatal]
  - Cardiovascular disorder [Fatal]
  - Neuropathy peripheral [Unknown]
  - Drug level above therapeutic [Unknown]
